FAERS Safety Report 5786262-7 (Version None)
Quarter: 2008Q2

REPORT INFORMATION
  Report Type: 
  Country: None (occurrence: None)
  Receive Date: 20080624
  Receipt Date: 20080616
  Transmission Date: 20081010
  Serious: Yes (Disabling)
  Sender: FDA-Public Use
  Company Number: CA-ELI_LILLY_AND_COMPANY-CA200805004254

PATIENT
  Age: 42 Year
  Sex: Female
  Weight: 56.236 kg

DRUGS (3)
  1. STRATTERA [Suspect]
     Dosage: 40 MG, UNK
  2. CONCERTA [Concomitant]
     Dosage: 54 MG, UNK
  3. CONCERTA [Concomitant]
     Dosage: 72 MG, UNK

REACTIONS (3)
  - AGITATION [None]
  - EMOTIONAL DISTRESS [None]
  - SUICIDAL IDEATION [None]
